FAERS Safety Report 14731558 (Version 1)
Quarter: 2018Q2

REPORT INFORMATION
  Report Type: Spontaneous
  Country: US (occurrence: US)
  Receive Date: 20180407
  Receipt Date: 20180407
  Transmission Date: 20180711
  Serious: No
  Sender: FDA-Public Use
  Company Number: US-TORRENT-00002663

PATIENT
  Age: 58 Year
  Sex: Female
  Weight: 92 kg

DRUGS (2)
  1. XANAX [Concomitant]
     Active Substance: ALPRAZOLAM
     Indication: ANXIETY
  2. ZOLPIDEM TARTRATE. [Suspect]
     Active Substance: ZOLPIDEM TARTRATE
     Indication: INSOMNIA
     Dosage: 10 MG TO BE TAKEN AT NIGHT
     Dates: start: 20170405

REACTIONS (4)
  - Product quality issue [Unknown]
  - Panic attack [Not Recovered/Not Resolved]
  - Drug ineffective [Not Recovered/Not Resolved]
  - Anxiety [Not Recovered/Not Resolved]

NARRATIVE: CASE EVENT DATE: 20170405
